FAERS Safety Report 20749993 (Version 2)
Quarter: 2022Q2

REPORT INFORMATION
  Report Type: Report from Study
  Country: DE (occurrence: DE)
  Receive Date: 20220426
  Receipt Date: 20220519
  Transmission Date: 20220721
  Serious: Yes (Other)
  Sender: FDA-Public Use
  Company Number: DE-MYLANLABS-2022M1030509

PATIENT
  Sex: Female
  Weight: 90 kg

DRUGS (1)
  1. CANDESARTAN [Suspect]
     Active Substance: CANDESARTAN
     Indication: Product used for unknown indication
     Dosage: UNK
     Dates: start: 202107

REACTIONS (3)
  - Cerebral ischaemia [Unknown]
  - Hemiparesis [Unknown]
  - Embolic stroke [Unknown]

NARRATIVE: CASE EVENT DATE: 20211116
